FAERS Safety Report 7945532-4 (Version None)
Quarter: 2011Q4

REPORT INFORMATION
  Report Type: 
  Country: None (occurrence: None)
  Receive Date: 20111129
  Receipt Date: 20100201
  Transmission Date: 20120403
  Serious: Yes (Hospitalization)
  Sender: FDA-Public Use
  Company Number: FR-SANOFI-AVENTIS-2010SA006914

PATIENT
  Age: 58 Year
  Sex: Male
  Weight: 51 kg

DRUGS (15)
  1. CLARITIN [Concomitant]
     Route: 065
     Dates: start: 20000101
  2. ACETAMINOPHEN [Concomitant]
     Indication: PAIN
     Route: 065
     Dates: start: 20090801, end: 20091027
  3. PROPOFAN [Concomitant]
     Indication: PAIN
     Route: 065
     Dates: start: 20091027
  4. ZOLPIDEM [Suspect]
     Indication: INSOMNIA
     Route: 065
     Dates: start: 20091202, end: 20091223
  5. NEURONTIN [Suspect]
     Route: 065
     Dates: start: 20091114, end: 20100315
  6. TRAMADOL HCL [Suspect]
     Indication: PAIN
     Route: 065
     Dates: start: 20091201, end: 20091221
  7. SORAFENIB [Suspect]
     Route: 048
     Dates: start: 20091021
  8. EQUANIL [Concomitant]
     Indication: DEPRESSION
     Route: 065
     Dates: start: 20091202
  9. OMEPRAZOLE [Concomitant]
     Indication: ABDOMINAL PAIN
     Route: 065
     Dates: start: 20090801
  10. EFFEXOR [Concomitant]
     Indication: DEPRESSION
     Route: 065
     Dates: start: 20091023
  11. OXYCODONE HCL [Suspect]
     Indication: PAIN
     Route: 065
     Dates: start: 20091202, end: 20091221
  12. PHENOBARBITAL TAB [Concomitant]
     Indication: EPILEPSY
     Route: 065
     Dates: start: 20090101
  13. TRAMADOL HYDROCHLORIDE [Suspect]
     Route: 065
     Dates: start: 20091114, end: 20091201
  14. XANAX [Suspect]
     Indication: DEPRESSION
     Route: 065
     Dates: start: 20091202
  15. ACTIFED [Concomitant]
     Route: 065
     Dates: start: 20071010, end: 20091027

REACTIONS (2)
  - MALNUTRITION [None]
  - CONFUSIONAL STATE [None]
